FAERS Safety Report 23992194 (Version 1)
Quarter: 2024Q2

REPORT INFORMATION
  Report Type: Report from Study
  Country: CA (occurrence: CA)
  Receive Date: 20240620
  Receipt Date: 20240620
  Transmission Date: 20240717
  Serious: Yes (Hospitalization)
  Sender: FDA-Public Use
  Company Number: CA-JNJFOC-20240640792

PATIENT
  Age: 15 Year
  Sex: Female

DRUGS (1)
  1. REMICADE [Suspect]
     Active Substance: INFLIXIMAB
     Indication: Crohn^s disease
     Route: 041
     Dates: start: 2023

REACTIONS (2)
  - Nasopharyngitis [Unknown]
  - Pneumonia [Unknown]

NARRATIVE: CASE EVENT DATE: 20240501
